FAERS Safety Report 5056719-5 (Version None)
Quarter: 2006Q2

REPORT INFORMATION
  Report Type: 
  Country: None (occurrence: None)
  Receive Date: 20060616
  Receipt Date: 20060510
  Transmission Date: 20061013
  Serious: No
  Sender: FDA-Public Use
  Company Number: 2006US000689

PATIENT
  Age: 82 Year
  Sex: Male

DRUGS (9)
  1. VESICARE [Suspect]
     Indication: DRUG USE FOR UNKNOWN INDICATION
     Dosage: 5 MG, UID/QD, ORAL
     Route: 048
     Dates: start: 20050101, end: 20060306
  2. LUMIGAN [Concomitant]
  3. MONOPRIL [Concomitant]
  4. ZOCOR [Concomitant]
  5. ASPIRIN [Concomitant]
  6. NIACIN [Concomitant]
  7. ASCORBIC ACID [Concomitant]
  8. MULTIVITAMIN [Concomitant]
  9. HYDROCHLOROTHIAZIDE [Concomitant]

REACTIONS (1)
  - CONSTIPATION [None]
